FAERS Safety Report 11640438 (Version 3)
Quarter: 2015Q4

REPORT INFORMATION
  Report Type: Spontaneous
  Country: US (occurrence: US)
  Receive Date: 20151019
  Receipt Date: 20151106
  Transmission Date: 20160304
  Serious: No
  Sender: FDA-Public Use
  Company Number: US-GLAXOSMITHKLINE-A0774651A

PATIENT
  Age: 65 Year
  Sex: Female

DRUGS (5)
  1. SUMATRIPTAN SUCCINATE. [Suspect]
     Active Substance: SUMATRIPTAN SUCCINATE
     Indication: MIGRAINE
  2. CALCIUM [Concomitant]
     Active Substance: CALCIUM
  3. INDERAL [Concomitant]
     Active Substance: PROPRANOLOL HYDROCHLORIDE
  4. LIPITOR [Concomitant]
     Active Substance: ATORVASTATIN CALCIUM
  5. IMITREX [Suspect]
     Active Substance: SUMATRIPTAN\SUMATRIPTAN SUCCINATE
     Indication: MIGRAINE
     Dosage: 6 ML, PRN
     Route: 030
     Dates: start: 20151012

REACTIONS (10)
  - Drug administration error [Not Recovered/Not Resolved]
  - Injection site mass [Unknown]
  - Pain in extremity [Not Recovered/Not Resolved]
  - Injection site bruising [Unknown]
  - Injection site pain [Unknown]
  - Incorrect route of drug administration [Unknown]
  - Hypoaesthesia [Not Recovered/Not Resolved]
  - Skin sensitisation [Unknown]
  - Injection site haemorrhage [Unknown]
  - Administration site induration [Unknown]

NARRATIVE: CASE EVENT DATE: 20090314
